FAERS Safety Report 4847715-9 (Version None)
Quarter: 2005Q4

REPORT INFORMATION
  Report Type: 
  Country: None (occurrence: None)
  Receive Date: 20051207
  Receipt Date: 20051003
  Transmission Date: 20060501
  Serious: Yes (Hospitalization)
  Sender: FDA-Public Use
  Company Number: US-MERCK-0510USA00909

PATIENT
  Age: 80 Year
  Sex: Female
  Weight: 77 kg

DRUGS (8)
  1. FOSAMAX [Suspect]
     Indication: OSTEOPOROSIS
     Route: 048
     Dates: start: 20041201, end: 20050101
  2. COUMADIN [Concomitant]
     Route: 065
     Dates: end: 20050101
  3. COUMADIN [Concomitant]
     Route: 065
     Dates: start: 20050101
  4. ASPIRIN [Concomitant]
     Route: 065
     Dates: end: 20050101
  5. ASPIRIN [Concomitant]
     Route: 065
     Dates: start: 20050101
  6. PLAVIX [Concomitant]
     Route: 065
     Dates: end: 20050101
  7. PLAVIX [Concomitant]
     Route: 065
     Dates: start: 20050101
  8. MOTRIN [Concomitant]
     Route: 065
     Dates: end: 20050101

REACTIONS (2)
  - GASTROINTESTINAL HAEMORRHAGE [None]
  - HUMERUS FRACTURE [None]
